FAERS Safety Report 12975917 (Version 3)
Quarter: 2018Q4

REPORT INFORMATION
  Report Type: Spontaneous
  Country: NL (occurrence: NL)
  Receive Date: 20161125
  Receipt Date: 20181205
  Transmission Date: 20190204
  Serious: Yes (Other)
  Sender: FDA-Public Use
  Company Number: NL-MYLANLABS-2016M1048968

PATIENT
  Age: 45 Year
  Sex: Male

DRUGS (2)
  1. CLOZAPINE. [Interacting]
     Active Substance: CLOZAPINE
     Dosage: 300 MG, QD
  2. CLOZAPINE. [Suspect]
     Active Substance: CLOZAPINE
     Indication: SCHIZOPHRENIA
     Dosage: 100 MILLIGRAM, QID

REACTIONS (12)
  - Salivary hypersecretion [Recovering/Resolving]
  - Tremor [Recovered/Resolved]
  - Visual impairment [Recovered/Resolved]
  - Stress [Recovered/Resolved]
  - Urinary retention [Recovered/Resolved]
  - Leukocytosis [Recovered/Resolved]
  - Constipation [Recovered/Resolved]
  - Device interaction [Recovered/Resolved]
  - Facial spasm [Recovered/Resolved]
  - Antipsychotic drug level increased [Recovered/Resolved]
  - Fatigue [Recovered/Resolved]
  - Antipsychotic drug level below therapeutic [Unknown]
